FAERS Safety Report 5294527-0 (Version None)
Quarter: 2007Q2

REPORT INFORMATION
  Report Type: 
  Country: None (occurrence: None)
  Receive Date: 20070409
  Receipt Date: 20070409
  Transmission Date: 20071010
  Serious: Yes (Death, Hospitalization)
  Sender: FDA-Public Use
  Company Number: None

PATIENT
  Sex: Female
  Weight: 74.8 kg

DRUGS (15)
  1. GEMCITABINE HCL [Suspect]
     Indication: RENAL CELL CARCINOMA STAGE UNSPECIFIED
     Dosage: 1440 MG D1, D8 IV
     Route: 042
     Dates: start: 20061120, end: 20070319
  2. CAPECITABINE [Suspect]
     Indication: RENAL CELL CARCINOMA STAGE UNSPECIFIED
     Dosage: 900 MG D1-14, BID PO
     Route: 048
     Dates: start: 20061120, end: 20070326
  3. NEXIUM [Concomitant]
  4. LEXAPRO [Concomitant]
  5. PREMARIN [Concomitant]
  6. AMARYL [Concomitant]
  7. ADVIL [Concomitant]
  8. TYLENOL [Concomitant]
  9. NORVASC [Concomitant]
  10. BENADRYL CREAM [Concomitant]
  11. ATANAX [Concomitant]
  12. VICUTUSSIN [Concomitant]
  13. DECADRON [Concomitant]
  14. INSULIN [Concomitant]
  15. MOBIC [Concomitant]

REACTIONS (2)
  - DISEASE PROGRESSION [None]
  - DYSPNOEA [None]
